FAERS Safety Report 6079468-3 (Version None)
Quarter: 2009Q1

REPORT INFORMATION
  Report Type: 
  Country: None (occurrence: None)
  Receive Date: 20090216
  Receipt Date: 20090204
  Transmission Date: 20090719
  Serious: Yes (Hospitalization, Other)
  Sender: FDA-Public Use
  Company Number: US-ELI_LILLY_AND_COMPANY-US200902000784

PATIENT
  Sex: Female

DRUGS (9)
  1. FORTEO [Suspect]
  2. ZETIA [Concomitant]
  3. MICARDIS [Concomitant]
  4. LYRICA [Concomitant]
  5. PREDNISONE [Concomitant]
  6. VITAMIN D [Concomitant]
  7. METOPROLOL TARTRATE [Concomitant]
  8. THYROID THERAPY [Concomitant]
  9. SPIRONOLACTONE [Concomitant]

REACTIONS (1)
  - BACK DISORDER [None]
